FAERS Safety Report 5562333-5 (Version None)
Quarter: 2007Q4

REPORT INFORMATION
  Report Type: 
  Country: None (occurrence: None)
  Receive Date: 20071215
  Receipt Date: 20070810
  Transmission Date: 20080405
  Serious: No
  Sender: FDA-Public Use
  Company Number: US-AMGEN-US238320

PATIENT
  Sex: Female

DRUGS (11)
  1. ARANESP [Suspect]
     Indication: DRUG USE FOR UNKNOWN INDICATION
     Route: 065
     Dates: start: 20070201
  2. PAXIL [Concomitant]
     Route: 065
  3. TRICOR [Concomitant]
     Route: 065
  4. LIPITOR [Concomitant]
     Route: 065
  5. K-DUR 10 [Concomitant]
     Route: 065
  6. JANUMET [Concomitant]
     Route: 065
  7. LASIX [Concomitant]
     Route: 065
  8. LOTREL [Concomitant]
     Route: 065
  9. METAMUCIL [Concomitant]
     Route: 065
  10. LANTUS [Concomitant]
     Route: 065
  11. HUMALOG [Concomitant]
     Route: 065

REACTIONS (1)
  - INJECTION SITE PAIN [None]
